FAERS Safety Report 19086096 (Version 4)
Quarter: 2021Q3

REPORT INFORMATION
  Report Type: Spontaneous
  Country: CA (occurrence: CA)
  Receive Date: 20210402
  Receipt Date: 20210922
  Transmission Date: 20211014
  Serious: Yes (Other)
  Sender: FDA-Public Use
  Company Number: CA-PFIZER INC-2021335813

PATIENT
  Age: 36 Year
  Sex: Female
  Weight: 66 kg

DRUGS (6)
  1. PREDNISONE. [Concomitant]
     Active Substance: PREDNISONE
     Dosage: 10 MG, 1X/DAY
     Route: 048
     Dates: end: 202102
  2. XELJANZ [Suspect]
     Active Substance: TOFACITINIB CITRATE
     Dosage: 5 MG, 2X/DAY
     Route: 048
     Dates: start: 2021
  3. PREDNISONE. [Concomitant]
     Active Substance: PREDNISONE
     Dosage: 40 MG, 1X/DAY
     Route: 048
     Dates: start: 202010
  4. XELJANZ [Suspect]
     Active Substance: TOFACITINIB CITRATE
     Dosage: 10 MG, 2X/DAY
     Route: 048
     Dates: start: 20210129, end: 2021
  5. PREDNISONE. [Concomitant]
     Active Substance: PREDNISONE
     Dosage: 35 MG, DAILY,EVERY1 WEEK (THEN FURTHER TAPERING)
     Route: 048
  6. XELJANZ [Suspect]
     Active Substance: TOFACITINIB CITRATE
     Indication: COLITIS ULCERATIVE
     Dosage: 10 MG, 2X/DAY
     Route: 048

REACTIONS (6)
  - Secretion discharge [Recovering/Resolving]
  - Condition aggravated [Recovering/Resolving]
  - Haemorrhage [Not Recovered/Not Resolved]
  - Colitis ulcerative [Unknown]
  - Chills [Unknown]
  - White blood cell count increased [Unknown]

NARRATIVE: CASE EVENT DATE: 202010
